FAERS Safety Report 20124641 (Version 1)
Quarter: 2021Q4

REPORT INFORMATION
  Report Type: Spontaneous
  Country: US (occurrence: US)
  Receive Date: 20211129
  Receipt Date: 20211129
  Transmission Date: 20220303
  Serious: Yes (Other)
  Sender: FDA-Public Use
  Company Number: US-Shilpa Medicare Limited-SML-US-2021-01423

PATIENT
  Age: 15 Year
  Sex: Male

DRUGS (2)
  1. CAPECITABINE [Suspect]
     Active Substance: CAPECITABINE
     Indication: Colorectal adenocarcinoma
     Route: 065
  2. OXALIPLATIN [Suspect]
     Active Substance: OXALIPLATIN
     Indication: Colorectal adenocarcinoma
     Route: 065

REACTIONS (3)
  - Adenomatous polyposis coli [Recovered/Resolved]
  - Gene mutation [Recovered/Resolved]
  - Neuropathy peripheral [Recovered/Resolved]
